FAERS Safety Report 4752422-7 (Version None)
Quarter: 2005Q3

REPORT INFORMATION
  Report Type: 
  Country: None (occurrence: None)
  Receive Date: 20050823
  Receipt Date: 20050817
  Transmission Date: 20060218
  Serious: Yes (Life-Threatening, Hospitalization)
  Sender: FDA-Public Use
  Company Number: 2005-131603-NL

PATIENT
  Age: 70 Year
  Sex: Male

DRUGS (3)
  1. MIRTAZAPINE [Suspect]
     Dosage: 45 MG
     Route: 048
     Dates: end: 20050716
  2. MIANSERIN HYDROCHLORIDE [Suspect]
     Dosage: 30 MG
     Route: 048
     Dates: start: 20050706, end: 20050719
  3. VALPROIC ACID [Concomitant]

REACTIONS (3)
  - GENERAL PHYSICAL HEALTH DETERIORATION [None]
  - PNEUMONIA [None]
  - SEROTONIN SYNDROME [None]
